FAERS Safety Report 14839839 (Version 2)
Quarter: 2018Q2

REPORT INFORMATION
  Report Type: Spontaneous
  Country: US (occurrence: US)
  Receive Date: 20180503
  Receipt Date: 20180517
  Transmission Date: 20180711
  Serious: Yes (Other)
  Sender: FDA-Public Use
  Company Number: US-ASTRAZENECA-2018SE44262

PATIENT
  Age: 67 Year
  Sex: Female
  Weight: 78.9 kg

DRUGS (3)
  1. FASENRA [Suspect]
     Active Substance: BENRALIZUMAB
     Indication: ASTHMA
     Dosage: 30.0MG UNKNOWN
     Route: 058
  2. ASMANEX [Concomitant]
     Active Substance: MOMETASONE FUROATE
     Dates: start: 20171107
  3. SYMBICORT [Suspect]
     Active Substance: BUDESONIDE\FORMOTEROL FUMARATE DIHYDRATE
     Route: 055
     Dates: start: 20171107

REACTIONS (4)
  - Productive cough [Unknown]
  - Cough [Unknown]
  - Hypersensitivity [Unknown]
  - Acute sinusitis [Unknown]
